FAERS Safety Report 5271758-7 (Version None)
Quarter: 2007Q1

REPORT INFORMATION
  Report Type: 
  Country: None (occurrence: None)
  Receive Date: 20070321
  Receipt Date: 20070221
  Transmission Date: 20070707
  Serious: Yes (Hospitalization, Disabling, Other)
  Sender: FDA-Public Use
  Company Number: US-PFIZER INC-2007014496

PATIENT
  Sex: Female
  Weight: 65.8 kg

DRUGS (1)
  1. BEXTRA [Suspect]
     Indication: FIBROMYALGIA
     Dates: start: 20040131, end: 20050105

REACTIONS (3)
  - AMNESIA [None]
  - CONVULSION [None]
  - VISUAL FIELD DEFECT [None]
